FAERS Safety Report 7530035-1 (Version None)
Quarter: 2011Q2

REPORT INFORMATION
  Report Type: 
  Country: None (occurrence: None)
  Receive Date: 20110607
  Receipt Date: 20110525
  Transmission Date: 20111010
  Serious: Yes (Hospitalization)
  Sender: FDA-Public Use
  Company Number: PHHY2011US42146

PATIENT
  Sex: Male
  Weight: 75.737 kg

DRUGS (1)
  1. EXJADE [Suspect]
     Indication: NEOPLASM
     Dosage: 1500 MG, QD
     Route: 048
     Dates: start: 20100729, end: 20110427

REACTIONS (4)
  - VOMITING [None]
  - BLOOD BILIRUBIN INCREASED [None]
  - COMPRESSION FRACTURE [None]
  - NAUSEA [None]
